FAERS Safety Report 7112454-0 (Version None)
Quarter: 2010Q4

REPORT INFORMATION
  Report Type: 
  Country: None (occurrence: None)
  Receive Date: 20101119
  Receipt Date: 20101111
  Transmission Date: 20110411
  Serious: Yes (Other)
  Sender: FDA-Public Use
  Company Number: US-PFIZER INC-2010146305

PATIENT
  Sex: Female
  Weight: 104 kg

DRUGS (2)
  1. DEPO-PROVERA [Suspect]
     Indication: CONTRACEPTION
     Dosage: 150 MG, UNK
     Route: 030
     Dates: start: 20070101, end: 20080101
  2. HYDROCHLOROTHIAZIDE [Concomitant]
     Indication: SWELLING
     Dosage: UNK

REACTIONS (4)
  - AMENORRHOEA [None]
  - CHOLECYSTITIS [None]
  - LIBIDO DECREASED [None]
  - POSTMENOPAUSE [None]
